FAERS Safety Report 19586516 (Version 1)
Quarter: 2021Q3

REPORT INFORMATION
  Report Type: Spontaneous
  Country: ES (occurrence: ES)
  Receive Date: 20210720
  Receipt Date: 20210720
  Transmission Date: 20211014
  Serious: Yes (Other)
  Sender: FDA-Public Use
  Company Number: ES-INSUD PHARMA-2107ES00761

PATIENT

DRUGS (2)
  1. VAXZEVRIA [Suspect]
     Active Substance: AZD-1222
     Indication: COVID-19 IMMUNISATION
     Dosage: 1 DOSE ADMINISTERED ? LEFT ARM
     Route: 030
     Dates: start: 20210305, end: 20210305
  2. SLINDA [Suspect]
     Active Substance: DROSPIRENONE
     Indication: HEAVY MENSTRUAL BLEEDING
     Dosage: 1 TABLET PER DAY
     Route: 048
     Dates: start: 20201101, end: 20210318

REACTIONS (3)
  - Myalgia [Not Recovered/Not Resolved]
  - Headache [Not Recovered/Not Resolved]
  - Intermenstrual bleeding [Not Recovered/Not Resolved]

NARRATIVE: CASE EVENT DATE: 20210312
